FAERS Safety Report 10209310 (Version 1)
Quarter: 2014Q2

REPORT INFORMATION
  Report Type: Spontaneous
  Country: US (occurrence: US)
  Receive Date: 20140530
  Receipt Date: 20140530
  Transmission Date: 20141212
  Serious: Yes (Other)
  Sender: FDA-Public Use
  Company Number: PHHY2014US062114

PATIENT
  Age: 57 Year
  Sex: Female

DRUGS (3)
  1. IBUPROFEN [Suspect]
     Dosage: 600 MG, PRN
  2. DYAZIDE [Interacting]
     Indication: MENIERE^S DISEASE
  3. ALLOPURINOL [Concomitant]

REACTIONS (4)
  - Crystal nephropathy [Unknown]
  - Proteinuria [Unknown]
  - Renal failure acute [Unknown]
  - Drug interaction [Unknown]
